FAERS Safety Report 14085388 (Version 1)
Quarter: 2017Q4

REPORT INFORMATION
  Report Type: Spontaneous
  Country: FR (occurrence: FR)
  Receive Date: 20171013
  Receipt Date: 20171013
  Transmission Date: 20180321
  Serious: Yes (Disabling)
  Sender: FDA-Public Use
  Company Number: PHHY2017FR133460

PATIENT
  Age: 87 Year
  Sex: Male
  Weight: 72 kg

DRUGS (3)
  1. AFINITOR [Suspect]
     Active Substance: EVEROLIMUS
     Indication: BREAST CANCER METASTATIC
     Dosage: 7.5 MG, UNK
     Route: 048
     Dates: start: 20161121
  2. AFINITOR [Suspect]
     Active Substance: EVEROLIMUS
     Dosage: 5 MG, UNK
     Route: 048
     Dates: start: 20170915
  3. AROMASINE [Suspect]
     Active Substance: EXEMESTANE
     Indication: PRODUCT USED FOR UNKNOWN INDICATION
     Dosage: 25 MG, UNK
     Route: 048
     Dates: start: 20161121, end: 20170915

REACTIONS (6)
  - Arthritis [Unknown]
  - Joint effusion [Recovering/Resolving]
  - Gait disturbance [Unknown]
  - Arthralgia [Recovering/Resolving]
  - Osteoarthritis [Unknown]
  - Pain [Not Recovered/Not Resolved]

NARRATIVE: CASE EVENT DATE: 201701
